FAERS Safety Report 10558337 (Version 2)
Quarter: 2014Q4

REPORT INFORMATION
  Report Type: Spontaneous
  Country: DE (occurrence: DE)
  Receive Date: 20141031
  Receipt Date: 20141113
  Transmission Date: 20150529
  Serious: Yes (Death)
  Sender: FDA-Public Use
  Company Number: DE-ACTAVIS-2014-23696

PATIENT
  Age: 48 Year
  Sex: Female
  Weight: 62 kg

DRUGS (7)
  1. ATOSIL                             /00033002/ [Concomitant]
     Active Substance: PROMETHAZINE HYDROCHLORIDE
     Indication: PRODUCT USED FOR UNKNOWN INDICATION
     Dosage: UNKNOWN
     Route: 065
  2. METOPROLOL (UNKNOWN) [Suspect]
     Active Substance: METOPROLOL
     Indication: DRUG DIVERSION
  3. VOMEX A [Concomitant]
     Active Substance: DIMENHYDRINATE
     Indication: PRODUCT USED FOR UNKNOWN INDICATION
     Dosage: UNKNOWN
     Route: 065
  4. METOPROLOL (UNKNOWN) [Suspect]
     Active Substance: METOPROLOL
     Indication: PRODUCT USED FOR UNKNOWN INDICATION
     Dosage: 240 ML, UNKNOWN
     Route: 050
  5. METOPROLOL (UNKNOWN) [Suspect]
     Active Substance: METOPROLOL
     Indication: INTENTIONAL OVERDOSE
  6. TRANXILIUM N [Suspect]
     Active Substance: NORDAZEPAM
     Indication: INTENTIONAL OVERDOSE
     Dosage: UNKNOWN
     Route: 050
  7. DOLANTIN [Suspect]
     Active Substance: MEPERIDINE
     Indication: INTENTIONAL OVERDOSE
     Dosage: UNKNOWN
     Route: 050

REACTIONS (5)
  - Cardiogenic shock [Fatal]
  - Drug diversion [Fatal]
  - Intentional overdose [Fatal]
  - Congestive cardiomyopathy [Fatal]
  - Completed suicide [Fatal]
